FAERS Safety Report 14341261 (Version 2)
Quarter: 2018Q3

REPORT INFORMATION
  Report Type: Spontaneous
  Country: CN (occurrence: CN)
  Receive Date: 20180102
  Receipt Date: 20180704
  Transmission Date: 20181010
  Serious: Yes (Death, Life-Threatening, Other)
  Sender: FDA-Public Use
  Company Number: CN-ACCORD-062442

PATIENT
  Age: 1 Year
  Sex: Female

DRUGS (3)
  1. BLEOMYCIN [Concomitant]
     Active Substance: BLEOMYCIN SULFATE
     Indication: OVARIAN GERM CELL ENDODERMAL SINUS TUMOUR STAGE II
     Dosage: DAYS 1 TO 7
  2. CISPLATIN. [Suspect]
     Active Substance: CISPLATIN
     Indication: OVARIAN GERM CELL ENDODERMAL SINUS TUMOUR STAGE II
     Dosage: DAYS 1 TO 5
  3. VINCRISTINE [Concomitant]
     Active Substance: VINCRISTINE
     Indication: OVARIAN GERM CELL ENDODERMAL SINUS TUMOUR STAGE II
     Dosage: DAYS 1 TO 7

REACTIONS (12)
  - Melaena [Unknown]
  - Renal failure [Fatal]
  - Hyperkalaemia [Unknown]
  - Hyperuricaemia [Unknown]
  - Liver injury [Unknown]
  - Sepsis [Fatal]
  - Visual impairment [Unknown]
  - Epistaxis [Unknown]
  - Accidental overdose [Fatal]
  - Wrong drug administered [Fatal]
  - Cardiac arrest [Fatal]
  - Deafness [Unknown]
